FAERS Safety Report 26119569 (Version 1)
Quarter: 2025Q4

REPORT INFORMATION
  Report Type: Spontaneous
  Country: US (occurrence: US)
  Receive Date: 20251204
  Receipt Date: 20251204
  Transmission Date: 20260118
  Serious: No
  Sender: ABBVIE
  Company Number: US-ABBVIE-6573599

PATIENT
  Sex: Male

DRUGS (1)
  1. REFRESH TEARS PF [Suspect]
     Active Substance: CARBOXYMETHYLCELLULOSE SODIUM\GLYCERIN
     Indication: Product used for unknown indication
     Dosage: DOSE TEXT: 10 MILLILITER
     Route: 047

REACTIONS (3)
  - Visual impairment [Unknown]
  - Hypoacusis [Unknown]
  - Product container issue [Not Recovered/Not Resolved]
